FAERS Safety Report 20631934 (Version 1)
Quarter: 2022Q1

REPORT INFORMATION
  Report Type: Report from Study
  Country: US (occurrence: US)
  Receive Date: 20220324
  Receipt Date: 20220324
  Transmission Date: 20220424
  Serious: Yes (Hospitalization, Other)
  Sender: FDA-Public Use
  Company Number: US-BAYER-2022A040327

PATIENT
  Sex: Female
  Weight: 96.2 kg

DRUGS (9)
  1. COPANLISIB [Suspect]
     Active Substance: COPANLISIB
     Indication: Invasive breast carcinoma
     Dosage: 45 MG, D1,15
  2. COPANLISIB [Suspect]
     Active Substance: COPANLISIB
     Indication: Metastases to bone
     Dosage: 30 MG
     Dates: start: 20220211, end: 20220211
  3. COPANLISIB [Suspect]
     Active Substance: COPANLISIB
     Indication: Metastases to lung
  4. ABEMACICLIB [Suspect]
     Active Substance: ABEMACICLIB
     Indication: Invasive breast carcinoma
     Dosage: 100 MG, BID, 5D ON/2D OFF PER WEEK
     Dates: start: 20220211, end: 20220224
  5. ABEMACICLIB [Suspect]
     Active Substance: ABEMACICLIB
     Indication: Metastases to bone
  6. ABEMACICLIB [Suspect]
     Active Substance: ABEMACICLIB
     Indication: Metastases to lung
  7. FULVESTRANT [Suspect]
     Active Substance: FULVESTRANT
     Indication: Invasive breast carcinoma
     Dosage: 500 MG
     Dates: start: 20220211, end: 20220211
  8. FULVESTRANT [Suspect]
     Active Substance: FULVESTRANT
     Indication: Metastases to bone
  9. FULVESTRANT [Suspect]
     Active Substance: FULVESTRANT
     Indication: Metastases to lung

REACTIONS (4)
  - Pneumonitis [Not Recovered/Not Resolved]
  - Dysphagia [Recovered/Resolved]
  - Fatigue [Not Recovered/Not Resolved]
  - Oropharyngeal pain [Not Recovered/Not Resolved]

NARRATIVE: CASE EVENT DATE: 20220214
